FAERS Safety Report 16731179 (Version 1)
Quarter: 2019Q3

REPORT INFORMATION
  Report Type: Spontaneous
  Country: US (occurrence: US)
  Receive Date: 20190822
  Receipt Date: 20190822
  Transmission Date: 20191005
  Serious: No
  Sender: FDA-Public Use
  Company Number: US-NEOPHARMA INC-000156

PATIENT

DRUGS (2)
  1. AUGMENTIN [Suspect]
     Active Substance: AMOXICILLIN\CLAVULANATE POTASSIUM
     Indication: PRODUCT USED FOR UNKNOWN INDICATION
  2. RELPAX [Suspect]
     Active Substance: ELETRIPTAN HYDROBROMIDE
     Indication: MIGRAINE
     Dosage: 1 TABLET AT ONSET OF MIGRAINE, MAY REPEAT ONCE IN 2 HOURS IF NEEDED.
     Route: 048
     Dates: start: 20190516

REACTIONS (2)
  - Drug hypersensitivity [Unknown]
  - Gastrointestinal tract irritation [Unknown]
